FAERS Safety Report 23063105 (Version 1)
Quarter: 2023Q4

REPORT INFORMATION
  Report Type: Spontaneous
  Country: NL (occurrence: NL)
  Receive Date: 20231013
  Receipt Date: 20231013
  Transmission Date: 20240109
  Serious: Yes (Other)
  Sender: FDA-Public Use
  Company Number: None

PATIENT
  Age: 16 Year
  Sex: Male

DRUGS (1)
  1. ARIPIPRAZOLE [Suspect]
     Active Substance: ARIPIPRAZOLE
     Indication: Behaviour disorder
     Dosage: 1D1.5T  , BRAND NAME NOT SPECIFIED
     Dates: start: 20180118

REACTIONS (1)
  - Gambling disorder [Not Recovered/Not Resolved]
